FAERS Safety Report 7198981 (Version 2)
Quarter: 2015Q2

REPORT INFORMATION
  Report Type: Spontaneous
  Country: US (occurrence: US)
  Receive Date: 20091203
  Receipt Date: 20150430
  Transmission Date: 20150821
  Serious: No
  Sender: FDA-Public Use
  Company Number: US-AMGEN-KDL322116

PATIENT
  Age: 60 Year
  Sex: Male

DRUGS (1)
  1. ENBREL [Suspect]
     Active Substance: ETANERCEPT
     Indication: PSORIASIS
     Dosage: 50 MG, 2 TIMES/WK
     Route: 065
     Dates: start: 20071016

REACTIONS (6)
  - Unevaluable event [Unknown]
  - Injection site erythema [Not Recovered/Not Resolved]
  - Psoriasis [Unknown]
  - Injection site haemorrhage [Not Recovered/Not Resolved]
  - Malaise [Unknown]
  - Injection site induration [Not Recovered/Not Resolved]
